FAERS Safety Report 8618671 (Version 3)
Quarter: 2012Q4

REPORT INFORMATION
  Report Type: 
  Country: US (occurrence: US)
  Receive Date: 20120618
  Receipt Date: 20120904
  Transmission Date: 20130627
  Serious: No
  Sender: FDA-Public Use
  Company Number: US-PFIZER INC-2012142893

PATIENT
  Age: 50 Year
  Sex: Male
  Weight: 97.51 kg

DRUGS (2)
  1. ADVIL [Suspect]
     Dosage: UNK
     Dates: start: 20120522
  2. METFORMIN HYDROCHLORIDE [Suspect]
     Dosage: 1000 mg, UNK
     Dates: start: 20120522, end: 201206

REACTIONS (6)
  - Wrong drug administered [Unknown]
  - Malaise [Unknown]
  - Diarrhoea [Unknown]
  - Headache [Unknown]
  - Product lot number issue [Unknown]
  - Product commingling [Unknown]
